FAERS Safety Report 15525614 (Version 7)
Quarter: 2019Q4

REPORT INFORMATION
  Report Type: Report from Study
  Country: CA (occurrence: CA)
  Receive Date: 20181019
  Receipt Date: 20191224
  Transmission Date: 20200122
  Serious: Yes (Other)
  Sender: FDA-Public Use
  Company Number: CA-SA-2017SA171985

PATIENT
  Age: 26 Year
  Sex: Male

DRUGS (12)
  1. ACICLOVIR [Concomitant]
     Active Substance: ACYCLOVIR
     Indication: PREMEDICATION
     Dosage: 200 MG,BID
     Route: 048
     Dates: start: 20170911
  2. MARIJUANA [Concomitant]
     Active Substance: CANNABIS SATIVA SUBSP. INDICA TOP
     Dosage: UNK UNK,QD
     Route: 065
  3. OLANZAPINE. [Suspect]
     Active Substance: OLANZAPINE
     Indication: HALLUCINATION
     Dosage: UNK UNK,UNK
     Route: 048
  4. ZOPICLONE [Concomitant]
     Active Substance: ZOPICLONE
     Indication: SLEEP DISORDER
     Dosage: UNK UNK,PRN
     Route: 048
  5. ALEMTUZUMAB [Suspect]
     Active Substance: ALEMTUZUMAB
     Dosage: 12 MG,QD
     Route: 041
     Dates: start: 20170919, end: 20170919
  6. D-TABS [Concomitant]
     Active Substance: CHOLECALCIFEROL
     Dosage: UNK UNK, QW
     Route: 065
  7. ACETAMINOPHEN. [Concomitant]
     Active Substance: ACETAMINOPHEN
     Indication: PREMEDICATION
     Dosage: 1 G,PRN
     Route: 048
     Dates: start: 20170911
  8. METHYLPREDNISOLONE. [Suspect]
     Active Substance: METHYLPREDNISOLONE
     Indication: PREMEDICATION
     Dosage: 1 G,UNK
     Route: 042
     Dates: start: 20170911, end: 20170919
  9. REACTINE [CETIRIZINE HYDROCHLORIDE] [Concomitant]
     Active Substance: CETIRIZINE HYDROCHLORIDE
     Indication: PREMEDICATION
     Dosage: 5 MG,UNK
     Route: 048
     Dates: start: 20170911, end: 20170919
  10. RANITIDINE. [Concomitant]
     Active Substance: RANITIDINE
     Indication: PREMEDICATION
     Dosage: 150 MG,UNK
     Route: 048
     Dates: start: 20170911, end: 20170919
  11. ALEMTUZUMAB [Suspect]
     Active Substance: ALEMTUZUMAB
     Indication: RELAPSING-REMITTING MULTIPLE SCLEROSIS
     Dosage: 12 MG,QD
     Route: 041
     Dates: start: 20170911, end: 20170914
  12. CELEXA [CELECOXIB] [Concomitant]
     Active Substance: CELECOXIB
     Dosage: UNK UNK, UNK
     Route: 065

REACTIONS (52)
  - Monocyte percentage increased [Recovered/Resolved]
  - Hot flush [Recovered/Resolved]
  - Heart rate decreased [Recovered/Resolved]
  - Paranoia [Recovered/Resolved]
  - Somnambulism [Recovered/Resolved]
  - Rash [Not Recovered/Not Resolved]
  - Oropharyngeal pain [Not Recovered/Not Resolved]
  - Cough [Not Recovered/Not Resolved]
  - Red cell distribution width increased [Recovered/Resolved]
  - Anxiety [Recovered/Resolved]
  - Pain in extremity [Recovered/Resolved]
  - Red blood cells urine positive [Recovered/Resolved]
  - Nausea [Recovered/Resolved]
  - Abdominal pain [Recovered/Resolved]
  - Lymphocyte count decreased [Not Recovered/Not Resolved]
  - Depression [Recovered/Resolved]
  - Urine analysis abnormal [Not Recovered/Not Resolved]
  - Lymphocyte percentage decreased [Not Recovered/Not Resolved]
  - Hallucination [Recovered/Resolved]
  - Chest pain [Recovered/Resolved]
  - White blood cells urine positive [Recovered/Resolved]
  - Pruritus [Recovered/Resolved]
  - Platelet count decreased [Not Recovered/Not Resolved]
  - B-lymphocyte count decreased [Unknown]
  - Fall [Recovered/Resolved]
  - Bilirubin urine present [Recovered/Resolved]
  - Normocytic anaemia [Unknown]
  - Abdominal distension [Recovered/Resolved]
  - Haematocrit decreased [Recovered/Resolved]
  - Urine leukocyte esterase positive [Recovered/Resolved]
  - Headache [Recovered/Resolved]
  - Pregnancy of partner [Unknown]
  - Specific gravity urine increased [Recovered/Resolved]
  - Decreased appetite [Recovered/Resolved]
  - Paraesthesia [Recovered/Resolved]
  - White blood cell count decreased [Recovered/Resolved]
  - Head injury [Not Recovered/Not Resolved]
  - Dysgeusia [Recovered/Resolved]
  - Pneumonia [Not Recovered/Not Resolved]
  - Neutrophil percentage increased [Recovered/Resolved]
  - Urine ketone body present [Recovered/Resolved]
  - Eosinophil percentage increased [Recovered/Resolved]
  - Oropharyngeal pain [Recovered/Resolved]
  - Blood urine present [Recovered/Resolved]
  - Chest discomfort [Recovered/Resolved]
  - Acne [Not Recovered/Not Resolved]
  - Poor quality sleep [Recovered/Resolved]
  - Brain injury [Not Recovered/Not Resolved]
  - Cough [Not Recovered/Not Resolved]
  - Bacterial test positive [Recovered/Resolved]
  - Rash erythematous [Recovering/Resolving]
  - Fatigue [Recovering/Resolving]

NARRATIVE: CASE EVENT DATE: 20170911
